FAERS Safety Report 5951632-0 (Version None)
Quarter: 2008Q4

REPORT INFORMATION
  Report Type: 
  Country: None (occurrence: None)
  Receive Date: 20081113
  Receipt Date: 20081110
  Transmission Date: 20090506
  Serious: Yes (Other)
  Sender: FDA-Public Use
  Company Number: US-ASTRAZENECA-2008UW25185

PATIENT
  Age: 84 Year
  Sex: Male
  Weight: 70.3 kg

DRUGS (16)
  1. SEROQUEL [Suspect]
     Indication: HALLUCINATION
     Dosage: STARTED AT 25 MG, SUBSEQUENTLY INCREASED TO 50 MG, 75 MG, 100 MG - THEN DECREASED TO 75 MG
     Route: 048
     Dates: start: 20080301
  2. SEROQUEL [Suspect]
     Indication: DEMENTIA
     Dosage: STARTED AT 25 MG, SUBSEQUENTLY INCREASED TO 50 MG, 75 MG, 100 MG - THEN DECREASED TO 75 MG
     Route: 048
     Dates: start: 20080301
  3. PLENDIL [Suspect]
     Route: 048
  4. AMBIEN [Concomitant]
  5. TRAVOSTONE [Concomitant]
  6. ISOSORBIDE [Concomitant]
  7. BENOCOR [Concomitant]
  8. LOVAZA [Concomitant]
  9. RENAGEL [Concomitant]
  10. FOLIC ACID [Concomitant]
  11. LOVASTATIN [Concomitant]
  12. LOVOXAL [Concomitant]
  13. PLAVIX [Concomitant]
  14. COREG [Concomitant]
  15. ASPIRIN [Concomitant]
  16. NAMENDA [Concomitant]

REACTIONS (8)
  - CARDIAC PACEMAKER INSERTION [None]
  - DRUG HYPERSENSITIVITY [None]
  - HALLUCINATION [None]
  - ILL-DEFINED DISORDER [None]
  - INSOMNIA [None]
  - NIGHTMARE [None]
  - TOOTH LOSS [None]
  - WEIGHT DECREASED [None]
